FAERS Safety Report 4332124-1 (Version None)
Quarter: 2004Q2

REPORT INFORMATION
  Report Type: 
  Country: None (occurrence: None)
  Receive Date: 20040405
  Receipt Date: 20030103
  Transmission Date: 20050107
  Serious: Yes (Death, Life-Threatening, Hospitalization)
  Sender: FDA-Public Use
  Company Number: PHHO2003DE00453

PATIENT
  Age: 13 Year
  Sex: Female
  Weight: 31 kg

DRUGS (1)
  1. SIMULECT [Suspect]
     Indication: RENAL TRANSPLANT
     Dosage: 10 MG, (DAY 0)
     Route: 042
     Dates: start: 20030102, end: 20030102

REACTIONS (25)
  - ANAPHYLACTIC REACTION [None]
  - C-REACTIVE PROTEIN INCREASED [None]
  - CARDIAC ARREST [None]
  - CARDIAC FAILURE ACUTE [None]
  - CEREBRAL HAEMORRHAGE [None]
  - COUGH [None]
  - HEADACHE [None]
  - HYPERTENSION [None]
  - HYPOTENSION [None]
  - LEFT VENTRICULAR FAILURE [None]
  - LOWER RESPIRATORY TRACT INFECTION [None]
  - LUNG INFILTRATION [None]
  - LYMPHADENOPATHY [None]
  - MYOCARDIAL FIBROSIS [None]
  - PNEUMONIA [None]
  - PULMONARY CONGESTION [None]
  - PULMONARY OEDEMA [None]
  - PYREXIA [None]
  - RESTLESSNESS [None]
  - SHOCK [None]
  - SPLEEN CONGESTION [None]
  - SWELLING FACE [None]
  - TACHYCARDIA [None]
  - VENTRICULAR HYPERTROPHY [None]
  - VIRAL INFECTION [None]
